FAERS Safety Report 4381941-0 (Version None)
Quarter: 2004Q2

REPORT INFORMATION
  Report Type: 
  Country: None (occurrence: None)
  Receive Date: 20040615
  Receipt Date: 20040603
  Transmission Date: 20050107
  Serious: Yes (Hospitalization)
  Sender: FDA-Public Use
  Company Number: 04P-062-0263274-00

PATIENT
  Age: 41 Year
  Sex: Male
  Weight: 62 kg

DRUGS (10)
  1. KALETRA [Suspect]
     Indication: HIV INFECTION
     Dosage: PER ORAL
     Route: 048
     Dates: start: 20031118, end: 20031203
  2. LAMIVUDINE [Suspect]
     Indication: HIV INFECTION
     Dosage: PER ORAL
     Route: 048
     Dates: start: 20031118, end: 20031203
  3. TENOFOVIR [Suspect]
     Indication: HIV INFECTION
     Dosage: PER ORAL
     Route: 048
     Dates: start: 20031118, end: 20031203
  4. BACTRIM [Suspect]
     Indication: INFECTION
     Dosage: PER ORAL
     Route: 048
     Dates: start: 20031118, end: 20031203
  5. LOPERAMIDE HCL [Concomitant]
  6. METOCLOPRAMIDE [Concomitant]
  7. LORAZEPAM [Concomitant]
  8. MYRTOL [Concomitant]
  9. ACETAMINOPHEN [Concomitant]
  10. BALDRIAN ROOT EXTRACT [Concomitant]

REACTIONS (3)
  - ANAEMIA HAEMOLYTIC AUTOIMMUNE [None]
  - IDIOPATHIC THROMBOCYTOPENIC PURPURA [None]
  - PANCYTOPENIA [None]
